FAERS Safety Report 4820911-2 (Version None)
Quarter: 2005Q4

REPORT INFORMATION
  Report Type: 
  Country: None (occurrence: None)
  Receive Date: 20051104
  Receipt Date: 20050414
  Transmission Date: 20060501
  Serious: Yes (Other)
  Sender: FDA-Public Use
  Company Number: 200511174JP

PATIENT
  Age: 54 Year
  Sex: Female

DRUGS (8)
  1. ARAVA [Suspect]
     Indication: RHEUMATOID ARTHRITIS
     Route: 048
     Dates: start: 20041208, end: 20050411
  2. RHEUMATREX [Concomitant]
     Indication: RHEUMATOID ARTHRITIS
     Dosage: DOSE: 8MG/WEEK
     Route: 048
     Dates: start: 20041112, end: 20050411
  3. PREDNISOLONE [Concomitant]
     Route: 048
     Dates: start: 20041112
  4. CLINORIL [Concomitant]
     Indication: RHEUMATOID ARTHRITIS
     Route: 048
     Dates: start: 20041112, end: 20050411
  5. FOLIAMIN [Concomitant]
     Indication: ADVERSE EVENT
     Dosage: DOSE: 5MG/WEEK
     Route: 048
     Dates: start: 20041112, end: 20050411
  6. FOLIAMIN [Concomitant]
     Indication: PROPHYLAXIS
     Dosage: DOSE: 5MG/WEEK
     Route: 048
     Dates: start: 20041112, end: 20050411
  7. PARIET [Concomitant]
     Indication: REFLUX OESOPHAGITIS
     Route: 048
     Dates: start: 20041112
  8. PREDOHAN [Concomitant]
     Indication: RHEUMATOID ARTHRITIS
     Route: 048
     Dates: start: 20041112

REACTIONS (2)
  - ALANINE AMINOTRANSFERASE INCREASED [None]
  - ASPARTATE AMINOTRANSFERASE INCREASED [None]
